FAERS Safety Report 8438093 (Version 2)
Quarter: 2013Q2

REPORT INFORMATION
  Report Type: Report from Study
  Country: MW (occurrence: MW)
  Receive Date: 20120302
  Receipt Date: 20130627
  Transmission Date: 20140414
  Serious: Yes (Death, Hospitalization)
  Sender: FDA-Public Use
  Company Number: MW-ABBOTT-11P-100-0873197-00

PATIENT
  Age: 42 Year
  Sex: Female
  Weight: 57 kg

DRUGS (6)
  1. ALUVIA TABLETS [Suspect]
     Indication: HIV INFECTION
     Route: 048
     Dates: start: 20100806, end: 20120212
  2. ZIDOVUDINE [Concomitant]
     Indication: HIV INFECTION
     Dates: start: 20100806, end: 20111102
  3. LAMUVUDINE [Concomitant]
     Indication: HIV INFECTION
     Dates: start: 20100806, end: 20120212
  4. TENOFOVIR [Concomitant]
     Indication: HIV INFECTION
     Dates: start: 20100806, end: 20120212
  5. COTRIMOXAZOLE [Concomitant]
     Indication: PRODUCT USED FOR UNKNOWN INDICATION
     Dates: start: 20100623, end: 20120212
  6. FLUCONAZOLE [Concomitant]
     Indication: PRODUCT USED FOR UNKNOWN INDICATION
     Dates: start: 20100623, end: 20120212

REACTIONS (2)
  - Anaemia [Fatal]
  - Neoplasm malignant [Fatal]
